FAERS Safety Report 7072581-3 (Version None)
Quarter: 2010Q4

REPORT INFORMATION
  Report Type: 
  Country: None (occurrence: None)
  Receive Date: 20101029
  Receipt Date: 20100216
  Transmission Date: 20110411
  Serious: No
  Sender: FDA-Public Use
  Company Number: A0844547A

PATIENT
  Sex: Male

DRUGS (2)
  1. ADVAIR DISKUS 100/50 [Suspect]
     Indication: PRODUCT USED FOR UNKNOWN INDICATION
     Route: 055
  2. FLOVENT [Suspect]
     Indication: PRODUCT USED FOR UNKNOWN INDICATION
     Route: 055

REACTIONS (3)
  - DRUG INEFFECTIVE [None]
  - TONGUE COATED [None]
  - WHEEZING [None]
